FAERS Safety Report 11866250 (Version 2)
Quarter: 2016Q1

REPORT INFORMATION
  Report Type: Other
  Country: US (occurrence: US)
  Receive Date: 20151223
  Receipt Date: 20160224
  Transmission Date: 20160526
  Serious: No
  Sender: FDA-Public Use
  Company Number: US-APOTEX-2015AP015030

PATIENT
  Age: 49 Year
  Sex: Female
  Weight: 91 kg

DRUGS (1)
  1. CIPROFLOXACIN HYDROCHLORIDE. [Suspect]
     Active Substance: CIPROFLOXACIN HYDROCHLORIDE
     Indication: URINARY TRACT INFECTION
     Dosage: 500 MG, BID
     Route: 048
     Dates: start: 20110616, end: 20110616

REACTIONS (4)
  - Urinary tract infection [Unknown]
  - Fatigue [Unknown]
  - Neuralgia [Unknown]
  - Tendon rupture [Recovering/Resolving]
